FAERS Safety Report 21180447 (Version 1)
Quarter: 2022Q3

REPORT INFORMATION
  Report Type: Report from Study
  Country: DE (occurrence: DE)
  Receive Date: 20220806
  Receipt Date: 20220806
  Transmission Date: 20221026
  Serious: Yes (Hospitalization)
  Sender: FDA-Public Use
  Company Number: DE-TEVA-2022-DE-2060503

PATIENT
  Age: 21 Year
  Sex: Female
  Weight: 67 kg

DRUGS (1)
  1. AJOVY [Suspect]
     Active Substance: FREMANEZUMAB-VFRM
     Indication: Migraine prophylaxis
     Dosage: LAST DOSE BEFORE START OF THE ADVERSE EVENT: 01-MAR-2022
     Route: 065
     Dates: start: 20210906, end: 2022

REACTIONS (1)
  - Reactive gastropathy [Recovered/Resolved]

NARRATIVE: CASE EVENT DATE: 20220609
